FAERS Safety Report 18176983 (Version 1)
Quarter: 2020Q3

REPORT INFORMATION
  Report Type: Spontaneous
  Country: US (occurrence: US)
  Receive Date: 20200820
  Receipt Date: 20200820
  Transmission Date: 20201103
  Serious: Yes (Death, Hospitalization, Other)
  Sender: FDA-Public Use
  Company Number: US-GRANULES INDIA LIMITED-2088854

PATIENT
  Sex: Male

DRUGS (1)
  1. METFORMIN [Suspect]
     Active Substance: METFORMIN HYDROCHLORIDE
     Indication: TYPE 2 DIABETES MELLITUS
     Dates: start: 20190803

REACTIONS (3)
  - Plasma cell myeloma [Fatal]
  - Malaise [Unknown]
  - Renal failure [Fatal]

NARRATIVE: CASE EVENT DATE: 20200401
